FAERS Safety Report 5941645-7 (Version None)
Quarter: 2008Q4

REPORT INFORMATION
  Report Type: 
  Country: None (occurrence: None)
  Receive Date: 20081031
  Receipt Date: 20081020
  Transmission Date: 20090506
  Serious: Yes (Hospitalization)
  Sender: FDA-Public Use
  Company Number: 2008AP002829

PATIENT
  Age: 65 Year
  Sex: Male

DRUGS (5)
  1. LITHIUM CARBONATE CAP [Suspect]
     Indication: DEPRESSION
     Dosage: 900 MG;QD;
  2. PAROXETINE HCL [Concomitant]
  3. .. [Concomitant]
  4. ZOLPIDEM [Concomitant]
  5. LORAZEPAM [Concomitant]

REACTIONS (10)
  - ANXIETY [None]
  - DEPRESSED MOOD [None]
  - DISTURBANCE IN ATTENTION [None]
  - FATIGUE [None]
  - INSOMNIA [None]
  - MAJOR DEPRESSION [None]
  - PSYCHIATRIC SYMPTOM [None]
  - RESTLESSNESS [None]
  - SOCIAL PHOBIA [None]
  - TREMOR [None]
